FAERS Safety Report 16326282 (Version 3)
Quarter: 2019Q3

REPORT INFORMATION
  Report Type: Spontaneous
  Country: US (occurrence: US)
  Receive Date: 20190517
  Receipt Date: 20190927
  Transmission Date: 20191004
  Serious: Yes (Other)
  Sender: FDA-Public Use
  Company Number: US-TAKEDA-2019TUS008684

PATIENT

DRUGS (9)
  1. NEXIUM [Suspect]
     Active Substance: ESOMEPRAZOLE MAGNESIUM
     Dosage: 40 MILLIGRAM, QD
     Route: 048
     Dates: start: 2003, end: 2017
  2. PRILOSEC [Suspect]
     Active Substance: OMEPRAZOLE MAGNESIUM
     Indication: ULCER
     Dosage: 40 MILLIGRAM, QD
     Route: 048
     Dates: start: 2003, end: 2017
  3. NEXIUM [Suspect]
     Active Substance: ESOMEPRAZOLE MAGNESIUM
     Indication: ULCER
     Dosage: UNK
     Route: 048
     Dates: start: 201512, end: 201611
  4. NEXIUM 24HR [Suspect]
     Active Substance: ESOMEPRAZOLE MAGNESIUM
     Indication: ULCER
     Dosage: 20 MILLIGRAM, QD
     Route: 048
     Dates: start: 2014, end: 2017
  5. PREVACID 24 HR [Suspect]
     Active Substance: LANSOPRAZOLE
     Indication: ULCER
     Dosage: 15 MILLIGRAM, QD
     Route: 048
     Dates: start: 2009, end: 2017
  6. PROTONIX [Suspect]
     Active Substance: PANTOPRAZOLE SODIUM
     Indication: ULCER
     Dosage: 40 MILLIGRAM, QD
     Route: 048
     Dates: start: 20151218, end: 20161126
  7. PREVACID [Suspect]
     Active Substance: LANSOPRAZOLE
     Indication: ULCER
     Dosage: 40 MILLIGRAM, QD
     Route: 048
     Dates: start: 2003, end: 2017
  8. PANTOPRAZOLE [Suspect]
     Active Substance: PANTOPRAZOLE
     Indication: ULCER
     Dosage: 40 MILLIGRAM, QD
     Route: 048
     Dates: start: 20161126
  9. OMEPRAZOLE. [Suspect]
     Active Substance: OMEPRAZOLE
     Indication: ULCER
     Dosage: 20 MILLIGRAM, QD
     Route: 048
     Dates: start: 2003, end: 2017

REACTIONS (3)
  - Chronic kidney disease [Not Recovered/Not Resolved]
  - Renal failure [Unknown]
  - End stage renal disease [Not Recovered/Not Resolved]

NARRATIVE: CASE EVENT DATE: 200510
